FAERS Safety Report 19666228 (Version 1)
Quarter: 2021Q3

REPORT INFORMATION
  Report Type: Spontaneous
  Country: US (occurrence: US)
  Receive Date: 20210806
  Receipt Date: 20210806
  Transmission Date: 20211014
  Serious: No
  Sender: FDA-Public Use
  Company Number: None

PATIENT
  Age: 65 Year
  Sex: Female
  Weight: 68.4 kg

DRUGS (3)
  1. AVEENO BABY CONTINUOUS PROTECTION SENSITIVE SKIN SUNSCREEN BROAD SPECTRUM SPF50 [Suspect]
     Active Substance: ZINC OXIDE
     Indication: PROPHYLAXIS AGAINST SOLAR RADIATION
     Route: 061
     Dates: start: 20210804, end: 20210804
  2. ROSUVASTATIN. [Concomitant]
     Active Substance: ROSUVASTATIN
  3. LEVOTHYROCIN [Concomitant]
     Active Substance: LEVOTHYROXINE

REACTIONS (5)
  - Rash [None]
  - Pain [None]
  - Skin burning sensation [None]
  - Chemical burn [None]
  - Pruritus [None]

NARRATIVE: CASE EVENT DATE: 20210804
